FAERS Safety Report 6641666-5 (Version None)
Quarter: 2010Q1

REPORT INFORMATION
  Report Type: 
  Country: None (occurrence: None)
  Receive Date: 20100316
  Receipt Date: 20100303
  Transmission Date: 20100710
  Serious: Yes (Other)
  Sender: FDA-Public Use
  Company Number: 230250J09USA

PATIENT
  Age: 41 Year
  Sex: Female
  Weight: 60 kg

DRUGS (9)
  1. REBIF [Suspect]
     Indication: MULTIPLE SCLEROSIS
     Dosage: SEE IMAGE
     Route: 058
     Dates: start: 20090413, end: 20091222
  2. REBIF [Suspect]
     Indication: MULTIPLE SCLEROSIS
     Dosage: SEE IMAGE
     Route: 058
     Dates: start: 20091222
  3. REBIF [Suspect]
     Indication: MULTIPLE SCLEROSIS
     Dosage: SEE IMAGE
     Route: 058
     Dates: start: 20091222
  4. ADVIL LIQUI-GELS [Concomitant]
  5. TYLENOL [Concomitant]
  6. PROVIGIL [Concomitant]
  7. MULTIVITAMIN (MULTIVITAMIN) [Concomitant]
  8. LOVAZA [Concomitant]
  9. VITAMIN D [Concomitant]

REACTIONS (5)
  - ALOPECIA [None]
  - BREAST CANCER FEMALE [None]
  - BREAST CANCER IN SITU [None]
  - FATIGUE [None]
  - INJECTION SITE ERYTHEMA [None]
